FAERS Safety Report 18195006 (Version 4)
Quarter: 2020Q4

REPORT INFORMATION
  Report Type: Spontaneous
  Country: GB (occurrence: GB)
  Receive Date: 20200825
  Receipt Date: 20201006
  Transmission Date: 20210113
  Serious: Yes (Hospitalization, Other)
  Sender: FDA-Public Use
  Company Number: GB-JNJFOC-20200824829

PATIENT
  Age: 32 Year
  Sex: Male

DRUGS (6)
  1. PROPOFOL. [Concomitant]
     Active Substance: PROPOFOL
  2. ROCURONIUM [Concomitant]
     Active Substance: ROCURONIUM BROMIDE
  3. MODAFINIL. [Suspect]
     Active Substance: MODAFINIL
     Indication: PRODUCT USED FOR UNKNOWN INDICATION
     Dosage: MORE THAN 600 MG
     Route: 065
  4. D-MANNOSE [Concomitant]
     Indication: URINARY TRACT INFECTION
     Route: 065
  5. METHYLPHENIDATE HYDROCHLORIDE. [Suspect]
     Active Substance: METHYLPHENIDATE HYDROCHLORIDE
     Indication: PRODUCT USED FOR UNKNOWN INDICATION
     Dosage: LESS THAN 200 MG
     Route: 065
  6. FENTANYL CITRATE. [Concomitant]
     Active Substance: FENTANYL CITRATE

REACTIONS (12)
  - White blood cell count increased [Recovered/Resolved]
  - Brain oedema [Recovered/Resolved]
  - Overdose [Recovered/Resolved]
  - Intentional product use issue [Recovered/Resolved]
  - Pneumonia aspiration [Recovered/Resolved]
  - Hypoosmolar state [Recovered/Resolved]
  - Coma scale abnormal [Recovered/Resolved]
  - Hyponatraemia [Recovered/Resolved]
  - Hypertonia [Recovered/Resolved]
  - Ecchymosis [Recovered/Resolved]
  - Urine sodium increased [Recovered/Resolved]
  - Hypovolaemia [Recovered/Resolved]
